FAERS Safety Report 6170678-3 (Version None)
Quarter: 2009Q2

REPORT INFORMATION
  Report Type: 
  Country: None (occurrence: None)
  Receive Date: 20090428
  Receipt Date: 20090420
  Transmission Date: 20091009
  Serious: Yes (Hospitalization, Other)
  Sender: FDA-Public Use
  Company Number: HQWYE347515MAR06

PATIENT
  Sex: Female
  Weight: 63.56 kg

DRUGS (7)
  1. PREMARIN [Suspect]
     Indication: OESTROGEN REPLACEMENT THERAPY
     Route: 048
     Dates: start: 20021101, end: 20030401
  2. PREMARIN [Suspect]
     Route: 048
     Dates: start: 20030501, end: 20030601
  3. TRILEPTAL [Concomitant]
     Dosage: UNKNOWN
     Route: 065
  4. CLARITIN [Concomitant]
     Dosage: UNKNOWN
     Route: 065
  5. ACETYLSALICYLIC ACID [Concomitant]
     Dosage: UNKNOWN
     Route: 065
  6. ABILIFY [Concomitant]
     Dosage: UNKNOWN
     Route: 065
  7. CALTRATE [Concomitant]
     Dosage: UNKNOWN
     Route: 065

REACTIONS (6)
  - BREAST MASS [None]
  - FLUID RETENTION [None]
  - MULTI-ORGAN FAILURE [None]
  - MYOCARDIAL INFARCTION [None]
  - PARAESTHESIA [None]
  - THROMBOSIS [None]
